FAERS Safety Report 5277507-0 (Version None)
Quarter: 2007Q1

REPORT INFORMATION
  Report Type: 
  Country: None (occurrence: None)
  Receive Date: 20070327
  Receipt Date: 20070316
  Transmission Date: 20070707
  Serious: Yes (Hospitalization)
  Sender: FDA-Public Use
  Company Number: US-JNJFOC-20070304092

PATIENT
  Sex: Female

DRUGS (21)
  1. DURAGESIC-100 [Suspect]
     Route: 062
  2. DURAGESIC-100 [Suspect]
     Indication: SPINAL COLUMN STENOSIS
     Route: 062
  3. RESTASIS [Concomitant]
     Indication: DRY EYE
     Route: 065
  4. PREVACID [Concomitant]
     Route: 065
  5. BENTYL [Concomitant]
     Route: 065
  6. COMPAZINE [Concomitant]
     Route: 065
  7. THEOPHYLLINE [Concomitant]
     Indication: ASTHMA
     Route: 065
  8. VERAPAMIL [Concomitant]
     Indication: HYPERTENSION
     Route: 065
  9. KEFLEX [Concomitant]
     Indication: COLON OPERATION
     Route: 065
  10. CALCIUM [Concomitant]
     Indication: DRUG USE FOR UNKNOWN INDICATION
     Route: 065
  11. FOSOMAX [Concomitant]
     Indication: DRUG USE FOR UNKNOWN INDICATION
     Route: 065
  12. NARCO [Concomitant]
     Indication: SPINAL COLUMN STENOSIS
     Route: 065
  13. ALBUTEROL [Concomitant]
     Indication: ASTHMA
     Route: 065
  14. TEGRETOL [Concomitant]
     Indication: CONVULSION
     Route: 065
  15. COLCHICINE [Concomitant]
     Indication: GOUT
     Route: 065
  16. SINGULAIR [Concomitant]
     Indication: ASTHMA
     Route: 065
  17. TOPROL-XL [Concomitant]
     Indication: HYPERTENSION
     Route: 065
  18. ZOLOFT [Concomitant]
     Indication: ANTIDEPRESSANT THERAPY
     Route: 065
  19. CLONADINE [Concomitant]
     Indication: HYPERTENSION
     Route: 065
  20. FLONASE [Concomitant]
     Indication: MULTIPLE ALLERGIES
     Route: 065
  21. PREDNISONE [Concomitant]
     Indication: ASTHMA
     Route: 065

REACTIONS (7)
  - ABDOMINAL PAIN UPPER [None]
  - DRUG INEFFECTIVE [None]
  - FALL [None]
  - INTESTINAL ISCHAEMIA [None]
  - LOWER GASTROINTESTINAL HAEMORRHAGE [None]
  - RIB FRACTURE [None]
  - SEPTIC SHOCK [None]
